FAERS Safety Report 6422435-8 (Version None)
Quarter: 2009Q4

REPORT INFORMATION
  Report Type: 
  Country: None (occurrence: None)
  Receive Date: 20091030
  Receipt Date: 20090611
  Transmission Date: 20100525
  Serious: No
  Sender: FDA-Public Use
  Company Number: PHHY2009CA24141

PATIENT
  Sex: Female

DRUGS (1)
  1. VOLTAREN (NVO) [Suspect]
     Dosage: UNK

REACTIONS (1)
  - DRUG ADMINISTRATION ERROR [None]
